FAERS Safety Report 13307539 (Version 1)
Quarter: 2017Q1

REPORT INFORMATION
  Report Type: Spontaneous
  Country: DE (occurrence: DE)
  Receive Date: 20170308
  Receipt Date: 20170308
  Transmission Date: 20170428
  Serious: Yes (Hospitalization)
  Sender: FDA-Public Use
  Company Number: DE-TEVA-743714GER

PATIENT
  Age: 60 Year
  Sex: Female

DRUGS (5)
  1. VENLAFAXINE [Suspect]
     Active Substance: VENLAFAXINE HYDROCHLORIDE
     Dates: start: 20100724, end: 20100726
  2. ESIDRIX [Concomitant]
     Active Substance: HYDROCHLOROTHIAZIDE
     Dates: start: 20100803
  3. ESIDRIX [Concomitant]
     Active Substance: HYDROCHLOROTHIAZIDE
     Dates: start: 20100801, end: 20100802
  4. HYDROCHLOROTHIAZIDE. [Interacting]
     Active Substance: HYDROCHLOROTHIAZIDE
     Dates: end: 20100730
  5. BISOPROLOL [Concomitant]
     Active Substance: BISOPROLOL

REACTIONS (9)
  - Drug interaction [Unknown]
  - Tremor [Recovered/Resolved]
  - Restlessness [Recovered/Resolved]
  - Vomiting [Recovered/Resolved]
  - Gait disturbance [Recovered/Resolved]
  - Dysmetria [Recovered/Resolved]
  - Hyponatraemia [Recovered/Resolved]
  - Nausea [Recovered/Resolved]
  - Agitation [Recovered/Resolved]

NARRATIVE: CASE EVENT DATE: 20100725
